FAERS Safety Report 4861079-6 (Version None)
Quarter: 2005Q4

REPORT INFORMATION
  Report Type: 
  Country: None (occurrence: None)
  Receive Date: 20051220
  Receipt Date: 20051207
  Transmission Date: 20060501
  Serious: Yes (Other)
  Sender: FDA-Public Use
  Company Number: BPC-SR-05-138

PATIENT
  Age: 30 Year
  Sex: Female

DRUGS (2)
  1. WELLBUTRIN SR [Suspect]
     Indication: MAJOR DEPRESSION
     Dosage: 100MG PER DAY
     Route: 048
  2. CITALOPRAM HYDROBROMIDE [Concomitant]
     Indication: MAJOR DEPRESSION
     Dosage: 60MG PER DAY
     Route: 048

REACTIONS (2)
  - APHASIA [None]
  - DYSLEXIA [None]
